FAERS Safety Report 5800476-9 (Version None)
Quarter: 2008Q3

REPORT INFORMATION
  Report Type: 
  Country: None (occurrence: None)
  Receive Date: 20080703
  Receipt Date: 20080627
  Transmission Date: 20090109
  Serious: Yes (Other)
  Sender: FDA-Public Use
  Company Number: A0735170A

PATIENT
  Age: 70 Year
  Sex: Male

DRUGS (3)
  1. ADVAIR DISKUS 100/50 [Suspect]
     Indication: PULMONARY FIBROSIS
     Dosage: 1PUFF PER DAY
     Route: 055
     Dates: start: 20020101
  2. PREDNISONE 50MG TAB [Concomitant]
  3. ALBUTEROL [Concomitant]

REACTIONS (2)
  - EYE DISORDER [None]
  - PAPILLOEDEMA [None]
